FAERS Safety Report 21176599 (Version 1)
Quarter: 2022Q3

REPORT INFORMATION
  Report Type: Spontaneous
  Country: US (occurrence: None)
  Receive Date: 20220804
  Receipt Date: 20220804
  Transmission Date: 20221026
  Serious: Yes (Life-Threatening)
  Sender: FDA-Public Use
  Company Number: None

PATIENT
  Age: 61 Year
  Sex: Female
  Weight: 67.5 kg

DRUGS (2)
  1. PROLIA [Suspect]
     Active Substance: DENOSUMAB
     Indication: Bone disorder
     Dates: start: 20160526, end: 20190101
  2. PROLIA [Suspect]
     Active Substance: DENOSUMAB
     Indication: Prophylaxis

REACTIONS (2)
  - Brain neoplasm [None]
  - Neuroendocrine carcinoma [None]

NARRATIVE: CASE EVENT DATE: 20201112
